FAERS Safety Report 13094644 (Version 1)
Quarter: 2017Q1

REPORT INFORMATION
  Report Type: Spontaneous
  Country: US (occurrence: US)
  Receive Date: 20170106
  Receipt Date: 20170106
  Transmission Date: 20170428
  Serious: Yes (Other)
  Sender: FDA-Public Use
  Company Number: US-ELI_LILLY_AND_COMPANY-US201607006215

PATIENT
  Sex: Female
  Weight: 102 kg

DRUGS (6)
  1. MULTIVITAMIN                       /00097801/ [Concomitant]
     Active Substance: VITAMINS
  2. PRINIVIL [Concomitant]
     Active Substance: LISINOPRIL
     Dosage: 5 MG, UNK
  3. CYMBALTA [Suspect]
     Active Substance: DULOXETINE HYDROCHLORIDE
     Dosage: 60 MG, QD
     Route: 048
     Dates: start: 20160811, end: 20161027
  4. ZYRTEC [Concomitant]
     Active Substance: CETIRIZINE HYDROCHLORIDE
     Dosage: 10 MG, QD
  5. PROZAC [Concomitant]
     Active Substance: FLUOXETINE HYDROCHLORIDE
     Dosage: UNK
  6. CYMBALTA [Suspect]
     Active Substance: DULOXETINE HYDROCHLORIDE
     Indication: PRODUCT USED FOR UNKNOWN INDICATION
     Dosage: 20 MG, QD
     Route: 048
     Dates: end: 201501

REACTIONS (29)
  - Nausea [Unknown]
  - Feeling abnormal [Unknown]
  - Vomiting [Unknown]
  - Headache [Unknown]
  - Suicidal ideation [Unknown]
  - Lethargy [Unknown]
  - Tremor [Unknown]
  - Vertigo [Unknown]
  - Anger [Unknown]
  - Irritability [Unknown]
  - Paraesthesia [Unknown]
  - Hyperhidrosis [Unknown]
  - Hallucination, auditory [Unknown]
  - Hypomania [Unknown]
  - Fatigue [Unknown]
  - Decreased appetite [Unknown]
  - Affect lability [Unknown]
  - Heart rate increased [Unknown]
  - Dysphoria [Unknown]
  - Hallucination, visual [Unknown]
  - Insomnia [Unknown]
  - Suicide attempt [Unknown]
  - Anxiety [Unknown]
  - Dizziness [Unknown]
  - Seizure [Unknown]
  - Agitation [Unknown]
  - Confusional state [Unknown]
  - Drug withdrawal syndrome [Unknown]
  - Diarrhoea [Unknown]
